FAERS Safety Report 6788030-6 (Version None)
Quarter: 2010Q2

REPORT INFORMATION
  Report Type: 
  Country: None (occurrence: None)
  Receive Date: 20100623
  Receipt Date: 20071120
  Transmission Date: 20101027
  Serious: No
  Sender: FDA-Public Use
  Company Number: US-PFIZER INC-2007097670

PATIENT
  Age: 70 Year
  Sex: Male
  Weight: 65.77 kg

DRUGS (9)
  1. HALCION [Suspect]
  2. AMBIEN [Suspect]
  3. SONATA [Suspect]
  4. LUNESTA [Suspect]
     Indication: INSOMNIA
     Route: 048
     Dates: start: 20070101
  5. METFORMIN HCL [Concomitant]
  6. GLYBURIDE [Concomitant]
  7. VYTORIN [Concomitant]
  8. SPIRONOLACTONE [Concomitant]
  9. LISINOPRIL [Concomitant]

REACTIONS (1)
  - SOMNOLENCE [None]
